FAERS Safety Report 4428791-4 (Version None)
Quarter: 2004Q3

REPORT INFORMATION
  Report Type: 
  Country: None (occurrence: None)
  Receive Date: 20040818
  Receipt Date: 20040811
  Transmission Date: 20050211
  Serious: Yes (Other)
  Sender: FDA-Public Use
  Company Number: JP-JNJFOC-20040305726

PATIENT

DRUGS (5)
  1. RISPERDAL [Suspect]
     Indication: DRUG USE FOR UNKNOWN INDICATION
     Route: 049
  2. PSYCHOTROPIC AGENTS [Concomitant]
     Route: 049
  3. VEGETAMIN [Concomitant]
     Route: 065
  4. VEGETAMIN [Concomitant]
     Route: 065
  5. VEGETAMIN [Concomitant]
     Route: 065

REACTIONS (1)
  - TOXIC EPIDERMAL NECROLYSIS [None]
